FAERS Safety Report 6872675-9 (Version None)
Quarter: 2010Q3

REPORT INFORMATION
  Report Type: 
  Country: None (occurrence: None)
  Receive Date: 20100723
  Receipt Date: 20081020
  Transmission Date: 20110219
  Serious: No
  Sender: FDA-Public Use
  Company Number: US-PFIZER INC-2008088781

PATIENT
  Sex: Female
  Weight: 81.8 kg

DRUGS (9)
  1. CHANTIX [Suspect]
     Indication: SMOKING CESSATION THERAPY
     Route: 048
     Dates: start: 20081011, end: 20081018
  2. KLOR-CON [Concomitant]
  3. ZOLOFT [Concomitant]
  4. PERCOCET [Concomitant]
     Indication: PAIN MANAGEMENT
     Dosage: AS NEEDED
  5. ATIVAN [Concomitant]
     Dosage: AS NEEDED
  6. HYDROCHLOROTHIAZIDE [Concomitant]
  7. ASPIRINE [Concomitant]
  8. VITAMINS [Concomitant]
  9. CALCIUM [Concomitant]

REACTIONS (2)
  - DIARRHOEA [None]
  - HEADACHE [None]
